FAERS Safety Report 6753078-4 (Version None)
Quarter: 2010Q2

REPORT INFORMATION
  Report Type: 
  Country: None (occurrence: None)
  Receive Date: 20100602
  Receipt Date: 20100602
  Transmission Date: 20101027
  Serious: Yes (Hospitalization)
  Sender: FDA-Public Use
  Company Number: None

PATIENT
  Age: 65 Year
  Sex: Female
  Weight: 76.2043 kg

DRUGS (2)
  1. LOVASTATIN [Suspect]
     Indication: BLOOD CHOLESTEROL INCREASED
     Dosage: 2 TABLETS 40 1 AM 1 PM
     Dates: start: 20080501
  2. LOVASTATIN [Suspect]
     Indication: BLOOD CHOLESTEROL INCREASED
     Dosage: 2 TABLETS 40 1 AM 1 PM
     Dates: start: 20091201

REACTIONS (3)
  - IMPAIRED WORK ABILITY [None]
  - RENAL DISORDER [None]
  - RHABDOMYOLYSIS [None]
